FAERS Safety Report 6033216-1 (Version None)
Quarter: 2009Q1

REPORT INFORMATION
  Report Type: 
  Country: None (occurrence: None)
  Receive Date: 20090109
  Receipt Date: 20090105
  Transmission Date: 20090719
  Serious: Yes (Death)
  Sender: FDA-Public Use
  Company Number: FR-ELI_LILLY_AND_COMPANY-FR200809005007

PATIENT
  Sex: Female

DRUGS (3)
  1. PROZAC [Suspect]
     Indication: DEPRESSION
     Dosage: 20 MG, DAILY (1/D)
     Route: 048
     Dates: start: 20080918, end: 20080922
  2. PROZAC [Suspect]
     Dosage: 20 MG, QOD
     Route: 048
     Dates: start: 20080923
  3. TEMESTA [Concomitant]
     Indication: ANXIETY
     Dosage: 1.25 MG, DAILY (1/D)
     Route: 048
     Dates: start: 20080918

REACTIONS (2)
  - DEATH [None]
  - SOMNOLENCE [None]
